FAERS Safety Report 8541408-2 (Version None)
Quarter: 2012Q3

REPORT INFORMATION
  Report Type: 
  Country: None (occurrence: None)
  Receive Date: 20120716
  Receipt Date: 20120628
  Transmission Date: 20120928
  Serious: Yes (Other)
  Sender: FDA-Public Use
  Company Number: EU-2012-10188

PATIENT
  Age: 79 Year
  Sex: Female

DRUGS (1)
  1. PLETAL [Suspect]
     Indication: INTERMITTENT CLAUDICATION
     Dosage: ORAL
     Route: 048
     Dates: start: 20120101

REACTIONS (2)
  - HYPERGLYCAEMIA [None]
  - CARDIAC FAILURE [None]
